FAERS Safety Report 4295837-6 (Version None)
Quarter: 2004Q1

REPORT INFORMATION
  Report Type: 
  Country: None (occurrence: None)
  Receive Date: 20040216
  Receipt Date: 20031118
  Transmission Date: 20041129
  Serious: No
  Sender: FDA-Public Use
  Company Number: US-GLAXOSMITHKLINE-A0440221A

PATIENT

DRUGS (2)
  1. LAMICTAL [Suspect]
     Dates: start: 20030801, end: 20031117
  2. LEXAPRO [Concomitant]

REACTIONS (2)
  - RASH [None]
  - RASH PUSTULAR [None]
